FAERS Safety Report 24258622 (Version 1)
Quarter: 2024Q3

REPORT INFORMATION
  Report Type: Spontaneous
  Country: CA (occurrence: CA)
  Receive Date: 20240828
  Receipt Date: 20240828
  Transmission Date: 20241017
  Serious: Yes (Hospitalization, Other)
  Sender: JOHNSON AND JOHNSON
  Company Number: CA-JNJFOC-20240859043

PATIENT
  Age: 15 Year
  Sex: Female
  Weight: 46 kg

DRUGS (6)
  1. IBUPROFEN [Suspect]
     Active Substance: IBUPROFEN
     Indication: Pain
     Route: 048
  2. FENBENDAZOLE [Suspect]
     Active Substance: FENBENDAZOLE
     Indication: Product used for unknown indication
     Route: 048
  3. OPDIVO [Suspect]
     Active Substance: NIVOLUMAB
     Indication: Ovarian cancer
     Route: 042
  4. TYLENOL [Concomitant]
     Active Substance: ACETAMINOPHEN
     Indication: Pain
     Route: 048
  5. HYDROMORPHONE [Concomitant]
     Active Substance: HYDROMORPHONE
     Indication: Pain
     Route: 048
  6. PALBOCICLIB [Concomitant]
     Active Substance: PALBOCICLIB
     Indication: Ovarian cancer
     Route: 048

REACTIONS (2)
  - Off label use [Recovering/Resolving]
  - Acute kidney injury [Recovering/Resolving]
